FAERS Safety Report 5669326-8 (Version None)
Quarter: 2008Q1

REPORT INFORMATION
  Report Type: 
  Country: None (occurrence: None)
  Receive Date: 20080317
  Receipt Date: 20080307
  Transmission Date: 20080703
  Serious: Yes (Other)
  Sender: FDA-Public Use
  Company Number: PHEH2008US02290

PATIENT
  Sex: Male

DRUGS (1)
  1. SERENTIL [Suspect]
     Dosage: 50 MG, UNK
     Route: 065

REACTIONS (5)
  - CHEST PAIN [None]
  - ERECTILE DYSFUNCTION [None]
  - MYOCARDIAL INFARCTION [None]
  - SPERM COUNT ABNORMAL [None]
  - THOUGHT BLOCKING [None]
